FAERS Safety Report 5605015-3 (Version None)
Quarter: 2008Q1

REPORT INFORMATION
  Report Type: 
  Country: None (occurrence: None)
  Receive Date: 20080111
  Receipt Date: 20070420
  Transmission Date: 20080703
  Serious: Yes (Other)
  Sender: FDA-Public Use
  Company Number: HQ4303520SEP2002

PATIENT
  Age: 52 Year
  Sex: Female
  Weight: 68.1 kg

DRUGS (2)
  1. PREMPHASE (PREMARIN;CYCRIN 14/14) [Suspect]
     Indication: MENOPAUSAL SYMPTOMS
     Dosage: 1 TABLET DAILY, 0.625 MG/5.0MG, ORAL
     Route: 048
     Dates: start: 20000601, end: 20020701
  2. LIPITOR [Concomitant]

REACTIONS (2)
  - BREAST CANCER FEMALE [None]
  - METRORRHAGIA [None]
